FAERS Safety Report 20748533 (Version 1)
Quarter: 2022Q2

REPORT INFORMATION
  Report Type: Spontaneous
  Country: US (occurrence: US)
  Receive Date: 20220426
  Receipt Date: 20220426
  Transmission Date: 20220721
  Serious: No
  Sender: FDA-Public Use
  Company Number: US-Calliditas-2022CAL00045

PATIENT
  Age: 37 Year
  Sex: Female

DRUGS (1)
  1. TARPEYO [Suspect]
     Active Substance: BUDESONIDE
     Indication: IgA nephropathy
     Dosage: 16 MG DAILY
     Route: 050
     Dates: start: 20220317

REACTIONS (5)
  - Nausea [Unknown]
  - Asthenia [Unknown]
  - Cognitive disorder [Unknown]
  - Photophobia [Unknown]
  - Abdominal distension [Unknown]
